FAERS Safety Report 13574408 (Version 1)
Quarter: 2017Q2

REPORT INFORMATION
  Report Type: Spontaneous
  Country: US (occurrence: US)
  Receive Date: 20170523
  Receipt Date: 20170523
  Transmission Date: 20170830
  Serious: Yes (Hospitalization)
  Sender: FDA-Public Use
  Company Number: US-SA-2017SA089623

PATIENT
  Age: 65 Year
  Sex: Female

DRUGS (3)
  1. LANTUS SOLOSTAR [Suspect]
     Active Substance: INSULIN GLARGINE
     Indication: TYPE 2 DIABETES MELLITUS
     Dosage: DOSE:30 UNIT(S)
     Route: 051
     Dates: start: 2007
  2. NOVOLOG [Concomitant]
     Active Substance: INSULIN ASPART
  3. SOLOSTAR [Suspect]
     Active Substance: DEVICE
     Indication: TYPE 2 DIABETES MELLITUS
     Dates: start: 2007

REACTIONS (7)
  - Product use issue [Unknown]
  - Hypoglycaemia [Unknown]
  - Visual impairment [Unknown]
  - Device issue [Unknown]
  - Cardiac failure congestive [Unknown]
  - Gastrointestinal disorder [Unknown]
  - Drug dose omission [Unknown]

NARRATIVE: CASE EVENT DATE: 20170511
